FAERS Safety Report 8853795 (Version 1)
Quarter: 2012Q4

REPORT INFORMATION
  Report Type: 
  Country: BR (occurrence: BR)
  Receive Date: 20121022
  Receipt Date: 20121022
  Transmission Date: 20130627
  Serious: Yes (Hospitalization, Other)
  Sender: FDA-Public Use
  Company Number: PHHY2009BR50962

PATIENT
  Sex: Male

DRUGS (10)
  1. EXELON [Suspect]
     Indication: DEMENTIA ALZHEIMER^S TYPE
     Dosage: 2 DF (6 mg), per day
     Route: 048
  2. EXELON [Suspect]
     Dosage: 1 DF (03 mg), BID (at 9:00 p.m and 9):00 a.m
     Route: 048
  3. EXELON PATCH [Suspect]
     Route: 062
  4. ASPIRINA [Suspect]
     Indication: CARDIOVASCULAR DISORDER
     Dosage: 1 DF, per day
     Route: 048
  5. PENTOXIFYLLINE [Suspect]
     Dosage: 2 DF, per day
     Route: 048
  6. EBIXA [Concomitant]
     Indication: CEREBRAL ATROPHY
     Dosage: 2 DF/day
     Route: 048
  7. LOSARTAN [Concomitant]
     Indication: HYPERTENSION
     Dosage: 2 DF/day
     Route: 048
  8. ALPRAZOLAM [Concomitant]
     Dosage: 1 DF/day
     Route: 048
  9. ZYPREXA [Concomitant]
     Dosage: 1 DF/day
     Route: 048
  10. SIMVASTATIN [Concomitant]
     Indication: BLOOD CHOLESTEROL
     Dosage: 1 DF/day
     Route: 048

REACTIONS (6)
  - Vomiting [Recovering/Resolving]
  - Diabetes mellitus [Recovering/Resolving]
  - Hyperhidrosis [Recovering/Resolving]
  - Malaise [Recovering/Resolving]
  - Nausea [Recovering/Resolving]
  - Blood pressure increased [Recovering/Resolving]
